FAERS Safety Report 16424032 (Version 1)
Quarter: 2019Q2

REPORT INFORMATION
  Report Type: Spontaneous
  Country: FR (occurrence: FR)
  Receive Date: 20190613
  Receipt Date: 20190613
  Transmission Date: 20190711
  Serious: Yes (Life-Threatening)
  Sender: FDA-Public Use
  Company Number: FR-ROCHE-2299096

PATIENT
  Age: 47 Year
  Sex: Female
  Weight: 87 kg

DRUGS (11)
  1. ZOVIRAX [Concomitant]
     Active Substance: ACYCLOVIR
     Route: 065
  2. OXYNORM [Suspect]
     Active Substance: OXYCODONE HYDROCHLORIDE
     Indication: PAIN
     Route: 041
     Dates: start: 20190220, end: 20190311
  3. CICLOSPORINE [Concomitant]
     Active Substance: CYCLOSPORINE
     Route: 065
  4. VANCOMYCINE [VANCOMYCIN] [Concomitant]
     Active Substance: VANCOMYCIN
     Route: 065
  5. AMBISOME [AMPHOTERICIN B] [Concomitant]
     Route: 065
  6. ZARZIO [Concomitant]
     Active Substance: FILGRASTIM
     Route: 065
  7. RIVOTRIL [Suspect]
     Active Substance: CLONAZEPAM
     Indication: PAIN
     Dosage: 1 MG/1 ML?MOST RECENT DOSE: 08/MAR/2019
     Route: 041
     Dates: start: 20190308
  8. VFEND [Concomitant]
     Active Substance: VORICONAZOLE
     Route: 065
  9. KETAMINE [Suspect]
     Active Substance: KETAMINE
     Indication: PAIN
     Dosage: MOST RECENT DOSE: 08/MAR/2019
     Route: 041
     Dates: start: 20190305
  10. TIENAM [Concomitant]
     Active Substance: CILASTATIN SODIUM\IMIPENEM
     Route: 065
  11. LETERMOVIR [Concomitant]
     Active Substance: LETERMOVIR
     Route: 065

REACTIONS (4)
  - Disorientation [Recovered/Resolved]
  - Overdose [Unknown]
  - Confusional state [Recovered/Resolved]
  - Urinary retention [Recovered/Resolved]

NARRATIVE: CASE EVENT DATE: 20190311
